FAERS Safety Report 8825291 (Version 4)
Quarter: 2012Q4

REPORT INFORMATION
  Report Type: 
  Country: DK (occurrence: DK)
  Receive Date: 20121004
  Receipt Date: 20121023
  Transmission Date: 20130627
  Serious: Yes (Hospitalization)
  Sender: FDA-Public Use
  Company Number: DK-009507513-1210DNK001698

PATIENT
  Age: 80 None
  Sex: Male

DRUGS (13)
  1. JANUVIA [Suspect]
     Indication: TYPE 2 DIABETES MELLITUS
     Dosage: UNK
     Route: 048
     Dates: start: 20110406
  2. JANUVIA [Interacting]
     Indication: TYPE 2 DIABETES MELLITUS
  3. METFORMIN [Interacting]
     Indication: TYPE 2 DIABETES MELLITUS
  4. SIMVASTATIN [Concomitant]
     Dosage: 40mg x1-2 nocte
  5. SIMVASTATIN [Concomitant]
     Dosage: 40mg x1-2 nocte
  6. SPIRIVA [Concomitant]
     Indication: CHRONIC OBSTRUCTIVE PULMONARY DISEASE
     Dosage: 18 (units unknown) once
  7. SERETIDE [Concomitant]
     Indication: CHRONIC OBSTRUCTIVE PULMONARY DISEASE
  8. VENTOLINE (ALBUTEROL SULFATE) [Concomitant]
     Dosage: 0.2,g x1 when needed
     Route: 055
  9. OXAPAX [Concomitant]
     Dosage: 15mg x1-2
  10. DIURAL [Concomitant]
     Dosage: 40 mg, bid
  11. ZOPICLONE [Concomitant]
     Dosage: 3.75 mg, Once
  12. LISINOPRIL COMP [Concomitant]
     Dosage: 20mg/12.5mg x1 per day
  13. SYMBICORT TURBUHALER [Concomitant]
     Dosage: 4.5mcg/150mcg, 2x2
     Route: 055

REACTIONS (7)
  - Chronic obstructive pulmonary disease [Unknown]
  - Blood lactic acid increased [Unknown]
  - Drug interaction [Unknown]
  - Syncope [Recovered/Resolved]
  - Dyspnoea [Recovered/Resolved]
  - PCO2 increased [Unknown]
  - Blood glucose increased [Unknown]
